FAERS Safety Report 7199880-9 (Version None)
Quarter: 2010Q4

REPORT INFORMATION
  Report Type: 
  Country: None (occurrence: None)
  Receive Date: 20101215
  Receipt Date: 20101209
  Transmission Date: 20110411
  Serious: Yes (Other)
  Sender: FDA-Public Use
  Company Number: 10P-229-0690457-00

PATIENT
  Sex: Female

DRUGS (2)
  1. ERYTHROPED A TABLETS (ERYTHROMYCIN ETHYLSUCCINATE) [Suspect]
     Indication: PROPHYLAXIS
     Dosage: 4000 MG (500 MG, 1 IN 3 HR), ORAL
     Route: 048
  2. METRONIDAZOLE [Suspect]
     Indication: PROPHYLAXIS
     Dosage: 3200 MG (400 MG, 1 IN 3 HR), ORAL
     Route: 048

REACTIONS (1)
  - SUICIDAL IDEATION [None]
